FAERS Safety Report 9773394 (Version 2)
Quarter: 2013Q4

REPORT INFORMATION
  Report Type: Report from Study
  Country: US (occurrence: US)
  Receive Date: 20131219
  Receipt Date: 20131219
  Transmission Date: 20140711
  Serious: Yes (Hospitalization, Other)
  Sender: FDA-Public Use
  Company Number: PHHO2013US012401

PATIENT
  Age: 74 Year
  Sex: Male
  Weight: 92.52 kg

DRUGS (20)
  1. AFINITOR [Suspect]
     Indication: PROSTATE CANCER METASTATIC
     Dosage: 2.5 MG, UNK
     Route: 048
     Dates: start: 20130912, end: 20131114
  2. TAXOTERE [Suspect]
     Indication: PROSTATE CANCER METASTATIC
     Dosage: 65 MG/M2, UNK
     Route: 042
     Dates: start: 20130911, end: 20131023
  3. BEVACIZUMAB [Suspect]
     Indication: PROSTATE CANCER METASTATIC
     Dosage: 15 MG/M2, UNK
     Route: 042
     Dates: start: 20130911, end: 20131118
  4. ZOLOFT [Concomitant]
     Route: 048
  5. TYLENOL PM [Concomitant]
     Dosage: 500 MG, QD
  6. LUPRON [Concomitant]
     Dosage: 22.5 MG, EVERY 3 MONTHS
     Route: 030
  7. IBUPROFEN [Concomitant]
     Dosage: 2 DF, DAILY
     Dates: start: 20130925
  8. DECADRON                                /CAN/ [Concomitant]
     Dosage: 4 NG, UNK
     Route: 048
     Dates: start: 20130911, end: 20131118
  9. ZOFRAN [Concomitant]
     Dosage: 8 NG, PRN
     Route: 048
     Dates: start: 20130911
  10. COMPAZINE [Concomitant]
     Dosage: 8 Q, PRN
     Dates: start: 20130911
  11. ATENOLOL [Concomitant]
  12. MIRALAX [Concomitant]
     Route: 048
  13. NEULASTA [Concomitant]
     Dosage: 6 MG, EVERY 21 DAYS
     Route: 058
     Dates: start: 20131003, end: 20131118
  14. PRILOSEC [Concomitant]
     Dosage: QTC
     Dates: start: 20130925
  15. CALCIUM [Concomitant]
  16. FISH OIL [Concomitant]
  17. IRON [Concomitant]
  18. VITAMIIN C [Concomitant]
  19. VITAMIN E [Concomitant]
  20. MULTI VIT CHOICE [Concomitant]

REACTIONS (4)
  - Febrile neutropenia [Recovered/Resolved]
  - Deep vein thrombosis [Recovered/Resolved]
  - Pyrexia [Unknown]
  - Portal vein thrombosis [Recovering/Resolving]
